FAERS Safety Report 9231800 (Version 2)
Quarter: 2013Q2

REPORT INFORMATION
  Report Type: Spontaneous
  Country: JP (occurrence: JP)
  Receive Date: 20130415
  Receipt Date: 20130424
  Transmission Date: 20140414
  Serious: Yes (Life-Threatening)
  Sender: FDA-Public Use
  Company Number: JP-ROCHE-1214044

PATIENT
  Age: 6 Year
  Sex: Male
  Weight: 19.5 kg

DRUGS (3)
  1. ROCEPHIN [Suspect]
     Indication: MENINGITIS
     Route: 041
     Dates: start: 20130409, end: 20130409
  2. BAKTAR [Concomitant]
     Dosage: DOSAGE IS UNCERTAIN
     Route: 065
  3. INDERAL [Concomitant]
     Dosage: DOSAGE IS UNCERTAIN.
     Route: 065

REACTIONS (1)
  - Anaphylactic shock [Recovered/Resolved]
